FAERS Safety Report 7929836-7 (Version None)
Quarter: 2011Q4

REPORT INFORMATION
  Report Type: 
  Country: None (occurrence: None)
  Receive Date: 20111121
  Receipt Date: 20111116
  Transmission Date: 20120403
  Serious: No
  Sender: FDA-Public Use
  Company Number: US-PFIZER INC-2011247007

PATIENT
  Sex: Female

DRUGS (1)
  1. ADVIL MIGRAINE LIQUI-GELS [Suspect]
     Indication: MIGRAINE
     Dosage: 200 MG, 2X/DAY
     Route: 048
     Dates: start: 20111011

REACTIONS (2)
  - HEADACHE [None]
  - DRUG INEFFECTIVE [None]
